FAERS Safety Report 4534344-X (Version None)
Quarter: 2004Q4

REPORT INFORMATION
  Report Type: 
  Country: None (occurrence: None)
  Receive Date: 20041220
  Receipt Date: 20041220
  Transmission Date: 20050328
  Serious: Yes (Hospitalization)
  Sender: FDA-Public Use
  Company Number: None

PATIENT
  Age: 10 Year
  Sex: Female
  Weight: 42.1845 kg

DRUGS (1)
  1. LAMICTAL [Suspect]
     Dosage: 25MG   1 A DAY   ORAL
     Route: 048

REACTIONS (9)
  - EYE DISORDER [None]
  - GASTROINTESTINAL DISORDER [None]
  - HEPATOCELLULAR DAMAGE [None]
  - MEDICATION ERROR [None]
  - PANCREATITIS [None]
  - PRESCRIBED OVERDOSE [None]
  - RENAL DISORDER [None]
  - STEVENS-JOHNSON SYNDROME [None]
  - TOXIC EPIDERMAL NECROLYSIS [None]
